FAERS Safety Report 9464867 (Version 1)
Quarter: 2013Q3

REPORT INFORMATION
  Report Type: Spontaneous
  Country: US (occurrence: US)
  Receive Date: 20130819
  Receipt Date: 20130819
  Transmission Date: 20140515
  Serious: No
  Sender: FDA-Public Use
  Company Number: US-PFIZER INC-2013235444

PATIENT
  Sex: Female

DRUGS (5)
  1. SULFASALAZINE [Suspect]
  2. DEXAMETHASONE SODIUM PHOSPHATE [Suspect]
  3. FENTANYL [Suspect]
  4. CODEINE HCL [Suspect]
  5. IMITREX [Suspect]

REACTIONS (1)
  - Drug hypersensitivity [Unknown]
